FAERS Safety Report 9282614 (Version 2)
Quarter: 2013Q4

REPORT INFORMATION
  Report Type: Spontaneous
  Country: US (occurrence: US)
  Receive Date: 20130510
  Receipt Date: 20131230
  Transmission Date: 20140711
  Serious: Yes (Other)
  Sender: FDA-Public Use
  Company Number: US-BAYER-2013-057670

PATIENT
  Age: 15 Year
  Sex: Female
  Weight: 72.56 kg

DRUGS (2)
  1. YAZ [Suspect]
     Indication: PREMENSTRUAL SYNDROME
     Dosage: UNK
     Dates: start: 2006, end: 2007
  2. YASMIN [Suspect]
     Indication: PREMENSTRUAL SYNDROME
     Dosage: UNK
     Dates: start: 2006, end: 2007

REACTIONS (13)
  - Pulmonary embolism [None]
  - Thrombosis [None]
  - Ectopic pregnancy [None]
  - Injury [None]
  - Anxiety [None]
  - Abdominal pain [None]
  - General physical health deterioration [None]
  - Emotional distress [None]
  - Pain [None]
  - Abdominal pain lower [None]
  - Swelling [None]
  - Drug ineffective [None]
  - Mental disorder [None]
